FAERS Safety Report 10556070 (Version 1)
Quarter: 2014Q4

REPORT INFORMATION
  Report Type: Spontaneous
  Country: US (occurrence: US)
  Receive Date: 20141030
  Receipt Date: 20141030
  Transmission Date: 20150529
  Serious: Yes (Other)
  Sender: FDA-Public Use
  Company Number: PHHY2014US138804

PATIENT
  Age: 68 Year
  Sex: Male

DRUGS (2)
  1. WARFARIN [Suspect]
     Active Substance: WARFARIN
     Indication: DEEP VEIN THROMBOSIS
  2. WARFARIN [Suspect]
     Active Substance: WARFARIN
     Indication: GLOMERULONEPHRITIS MEMBRANOUS
     Route: 065

REACTIONS (6)
  - Calciphylaxis [Unknown]
  - Pain of skin [Unknown]
  - Scab [Unknown]
  - Skin ulcer [Unknown]
  - Purpura [Unknown]
  - Skin necrosis [Unknown]
